FAERS Safety Report 8546518-1 (Version None)
Quarter: 2012Q3

REPORT INFORMATION
  Report Type: 
  Country: None (occurrence: None)
  Receive Date: 20120727
  Receipt Date: 20120103
  Transmission Date: 20120928
  Serious: No
  Sender: FDA-Public Use
  Company Number: US-ASTRAZENECA-2012SE00618

PATIENT
  Age: 29 Year
  Sex: Female

DRUGS (2)
  1. SEROQUEL XR [Suspect]
     Indication: SLEEP DISORDER THERAPY
     Route: 048
  2. AMBIEN [Concomitant]

REACTIONS (6)
  - INSOMNIA [None]
  - FEELING ABNORMAL [None]
  - OFF LABEL USE [None]
  - HEADACHE [None]
  - DRUG DOSE OMISSION [None]
  - INFECTIOUS MONONUCLEOSIS [None]
